FAERS Safety Report 4714284-3 (Version None)
Quarter: 2005Q3

REPORT INFORMATION
  Report Type: 
  Country: None (occurrence: None)
  Receive Date: 20050701
  Receipt Date: 20050111
  Transmission Date: 20060218
  Serious: Yes (Hospitalization)
  Sender: FDA-Public Use
  Company Number: US-2004-033149

PATIENT
  Age: 33 Year
  Sex: Female
  Weight: 65.3 kg

DRUGS (5)
  1. YASMIN [Suspect]
     Indication: DYSFUNCTIONAL UTERINE BLEEDING
     Dosage: 1 TAB(S), 1 X/DAY, ORAL
     Route: 048
     Dates: start: 20040618, end: 20040923
  2. VIOXX [Concomitant]
  3. ACIPHEX [Concomitant]
  4. ALLEGRA-D  /01367401/ (FEXOFENADINE HYDROCHLORIDE, PSEUDOEPHEDRINE HYD [Concomitant]
  5. FLONASE [Concomitant]

REACTIONS (1)
  - PULMONARY EMBOLISM [None]
